FAERS Safety Report 6069785-5 (Version None)
Quarter: 2009Q1

REPORT INFORMATION
  Report Type: 
  Country: None (occurrence: None)
  Receive Date: 20090209
  Receipt Date: 20090202
  Transmission Date: 20090719
  Serious: Yes (Other)
  Sender: FDA-Public Use
  Company Number: US-ASTRAZENECA-2009UW00061

PATIENT
  Age: 29 Year
  Sex: Male

DRUGS (9)
  1. SEROQUEL [Suspect]
     Indication: ANXIETY
     Route: 048
     Dates: start: 20080901
  2. SEROQUEL [Suspect]
     Indication: BIPOLAR DISORDER
     Route: 048
     Dates: start: 20080901
  3. SEROQUEL [Suspect]
     Dosage: PRESCRIBED 50 MG BID - BUT ONLY TAKING 1/2 TABLET AT BEDTIME DUE TO SIDE EFFECTS
     Route: 048
  4. SEROQUEL [Suspect]
     Dosage: PRESCRIBED 50 MG BID - BUT ONLY TAKING 1/2 TABLET AT BEDTIME DUE TO SIDE EFFECTS
     Route: 048
  5. SEROQUEL [Suspect]
     Dosage: PRESCRIBED 50 MG BID - BUT ONLY TAKING 1 TABLET PER DAY IF ANY AT ALL
     Route: 048
  6. SEROQUEL [Suspect]
     Dosage: PRESCRIBED 50 MG BID - BUT ONLY TAKING 1 TABLET PER DAY IF ANY AT ALL
     Route: 048
  7. SEROQUEL [Suspect]
     Route: 048
     Dates: start: 20081217
  8. SEROQUEL [Suspect]
     Route: 048
     Dates: start: 20081217
  9. XYREM [Concomitant]

REACTIONS (19)
  - ABDOMINAL PAIN UPPER [None]
  - ANGER [None]
  - ANOREXIA [None]
  - ASTHENIA [None]
  - DEPRESSION [None]
  - DIZZINESS [None]
  - DYSPNOEA [None]
  - FATIGUE [None]
  - HYPERHIDROSIS [None]
  - HYPERSOMNIA [None]
  - LOSS OF CONSCIOUSNESS [None]
  - MOVEMENT DISORDER [None]
  - MUSCLE SPASMS [None]
  - MUSCLE TWITCHING [None]
  - MUSCULOSKELETAL STIFFNESS [None]
  - SOMNOLENCE [None]
  - SUICIDAL IDEATION [None]
  - TIC [None]
  - TREMOR [None]
